FAERS Safety Report 5940903-X (Version None)
Quarter: 2008Q4

REPORT INFORMATION
  Report Type: 
  Country: None (occurrence: None)
  Receive Date: 20081104
  Receipt Date: 20081021
  Transmission Date: 20090506
  Serious: Yes (Other)
  Sender: FDA-Public Use
  Company Number: US-ELI_LILLY_AND_COMPANY-US200808006212

PATIENT
  Sex: Male
  Weight: 100.41 kg

DRUGS (13)
  1. BYETTA [Suspect]
     Indication: TYPE 2 DIABETES MELLITUS
     Dosage: 5 UG, 2/D
     Route: 058
     Dates: start: 20070525, end: 20071012
  2. BYETTA [Suspect]
     Dosage: 10 UG, 2/D
     Route: 058
     Dates: start: 20071012, end: 20080822
  3. ACTOS [Concomitant]
     Dosage: 45 MG, DAILY (1/D)
     Route: 065
     Dates: start: 20080111
  4. ASPIRIN [Concomitant]
     Dosage: 81 MG, DAILY (1/D)
     Route: 065
     Dates: start: 20080111
  5. LISINOPRIL [Concomitant]
     Dosage: 10 MG, DAILY (1/D)
     Route: 065
     Dates: start: 20080111
  6. LOVASTATIN [Concomitant]
     Dosage: 40 MG, DAILY (1/D)
     Route: 065
     Dates: start: 20080111
  7. METFORMIN HCL [Concomitant]
     Dosage: 1000 MG, DAILY (1/D)
     Route: 065
     Dates: start: 20080111
  8. ZETIA [Concomitant]
     Dosage: 10 MG, DAILY (1/D)
     Route: 065
     Dates: start: 20080516
  9. VESICARE [Concomitant]
     Dosage: 5 MG, DAILY (1/D)
     Route: 065
     Dates: start: 20071016
  10. ANTI-DIABETICS [Concomitant]
     Dosage: 100 MG, DAILY (1/D)
     Route: 065
     Dates: start: 20080822
  11. CINNAMON OIL [Concomitant]
     Dosage: UNK, UNKNOWN
     Route: 065
     Dates: start: 20080111
  12. GLUCOSAMINE COMPLEX [Concomitant]
     Dosage: UNK, DAILY (1/D)
     Route: 065
     Dates: start: 20080111
  13. ICAPS PLUS [Concomitant]
     Dosage: UNK, DAILY (1/D)
     Route: 065
     Dates: start: 20080111

REACTIONS (1)
  - PANCREATITIS ACUTE [None]
